FAERS Safety Report 9332722 (Version 2)
Quarter: 2013Q3

REPORT INFORMATION
  Report Type: Spontaneous
  Country: GB (occurrence: GB)
  Receive Date: 20130606
  Receipt Date: 20130702
  Transmission Date: 20140515
  Serious: Yes (Other)
  Sender: FDA-Public Use
  Company Number: GB-ROCHE-1231256

PATIENT
  Age: 14 Year
  Sex: Male
  Weight: 58 kg

DRUGS (2)
  1. ROACCUTANE [Suspect]
     Indication: ACNE
     Dosage: DAILY DOSE OF 60 MG OR 40 MG ALTERNATIVELY
     Route: 048
     Dates: start: 20100806, end: 20101207
  2. ROACCUTANE [Suspect]
     Dosage: SECOND COURSE FOR 16 WEEKS
     Route: 048
     Dates: start: 20110419

REACTIONS (3)
  - Epiphyses premature fusion [Not Recovered/Not Resolved]
  - Growth retardation [Unknown]
  - Body height decreased [Not Recovered/Not Resolved]
